FAERS Safety Report 5406654-5 (Version None)
Quarter: 2007Q3

REPORT INFORMATION
  Report Type: 
  Country: None (occurrence: None)
  Receive Date: 20070806
  Receipt Date: 20070725
  Transmission Date: 20080115
  Serious: Yes (Other)
  Sender: FDA-Public Use
  Company Number: IT-PFIZER INC-2007063564

PATIENT
  Age: 84 Year
  Sex: Male

DRUGS (2)
  1. TORVAST [Suspect]
     Indication: HYPERLIPIDAEMIA
  2. ZESTRIL [Concomitant]
     Route: 048

REACTIONS (2)
  - LYMPHOPENIA [None]
  - THROMBOCYTOPENIA [None]
